FAERS Safety Report 5199923-8 (Version None)
Quarter: 2007Q1

REPORT INFORMATION
  Report Type: 
  Country: None (occurrence: None)
  Receive Date: 20070103
  Receipt Date: 20061227
  Transmission Date: 20070707
  Serious: Yes (Other)
  Sender: FDA-Public Use
  Company Number: 0604-231

PATIENT
  Sex: Female

DRUGS (1)
  1. DUONEB [Suspect]
     Indication: PNEUMONIA
     Dosage: QID - PO
     Route: 048
     Dates: start: 20060405

REACTIONS (5)
  - ANXIETY [None]
  - GINGIVAL PAIN [None]
  - HEADACHE [None]
  - PNEUMONIA [None]
  - TREMOR [None]
